FAERS Safety Report 24780566 (Version 1)
Quarter: 2024Q4

REPORT INFORMATION
  Report Type: Spontaneous
  Country: FR (occurrence: FR)
  Receive Date: 20241227
  Receipt Date: 20241227
  Transmission Date: 20250114
  Serious: Yes (Hospitalization, Other)
  Sender: Kenvue
  Company Number: None

PATIENT

DRUGS (7)
  1. LOPERAMIDE HYDROCHLORIDE [Suspect]
     Active Substance: LOPERAMIDE HYDROCHLORIDE
     Indication: Diarrhoea
     Route: 048
  2. METFORMIN HYDROCHLORIDE\SAXAGLIPTIN [Suspect]
     Active Substance: METFORMIN HYDROCHLORIDE\SAXAGLIPTIN
     Indication: Diabetes mellitus
     Dosage: 1 TABLET IN THE MORNING AND 1 TABLET IN THE EVENING
     Route: 048
     Dates: start: 2014, end: 20241107
  3. REPAGLINIDE [Suspect]
     Active Substance: DULOXETINE HYDROCHLORIDE\REPAGLINIDE\TICAGRELOR
     Indication: Diabetes mellitus
     Route: 048
     Dates: end: 20241106
  4. EXFORGE [Suspect]
     Active Substance: AMLODIPINE BESYLATE\VALSARTAN
     Indication: Hypertension
     Route: 048
  5. ATORVASTATIN [Suspect]
     Active Substance: ATORVASTATIN
     Indication: Hypercholesterolaemia
     Route: 048
  6. JARDIANCE [Concomitant]
     Active Substance: EMPAGLIFLOZIN
     Indication: Product used for unknown indication
     Route: 065
  7. PANTOPRAZOLE [Concomitant]
     Active Substance: PANTOPRAZOLE
     Indication: Product used for unknown indication
     Route: 065

REACTIONS (1)
  - Pancreatitis [Recovering/Resolving]

NARRATIVE: CASE EVENT DATE: 20240101
